FAERS Safety Report 19211957 (Version 3)
Quarter: 2021Q2

REPORT INFORMATION
  Report Type: Spontaneous
  Country: JP (occurrence: JP)
  Receive Date: 20210504
  Receipt Date: 20210623
  Transmission Date: 20210717
  Serious: Yes (Other)
  Sender: FDA-Public Use
  Company Number: JP-GLAXOSMITHKLINE-JP2020232318

PATIENT
  Sex: Female
  Weight: 59.3 kg

DRUGS (7)
  1. PRANLUKAST [Concomitant]
     Active Substance: PRANLUKAST
     Dosage: 112.5 MG, QID
     Route: 048
  2. PRANLUKAST [Concomitant]
     Active Substance: PRANLUKAST
     Indication: ASTHMA
     Dosage: 225 MG, BID, IN THE MORNING, BEFORE BEDTIME
     Route: 048
  3. MEPTIN AIR [Concomitant]
     Active Substance: PROCATEROL HYDROCHLORIDE
     Indication: ASTHMA
     Dosage: UNK, PRN (WHEN HAVING AN ATTACK)
     Route: 055
  4. MEPOLIZUMAB [Suspect]
     Active Substance: MEPOLIZUMAB
     Indication: ASTHMA
     Dosage: 100 MG
     Route: 058
     Dates: start: 20161208, end: 202009
  5. SERETIDE [Suspect]
     Active Substance: FLUTICASONE PROPIONATE\SALMETEROL XINAFOATE
     Indication: ASTHMA
     Dosage: 500 ?G, BID
     Route: 055
     Dates: start: 2012
  6. PREDONINE [Concomitant]
     Active Substance: PREDNISOLONE
     Indication: MENIERE^S DISEASE
     Dosage: UNK
  7. NUCALA [Suspect]
     Active Substance: MEPOLIZUMAB
     Indication: ASTHMA
     Dosage: UNK EVERY 4 WEEKS
     Route: 058
     Dates: start: 202010, end: 20201105

REACTIONS (8)
  - Vulval ulceration [Recovering/Resolving]
  - Pyrexia [Recovering/Resolving]
  - Laryngopharyngitis [Recovering/Resolving]
  - Aphthous ulcer [Recovering/Resolving]
  - Behcet^s syndrome [Recovering/Resolving]
  - Lymphadenopathy [Recovering/Resolving]
  - Vulval eczema [Recovering/Resolving]
  - Laryngeal pain [Recovering/Resolving]

NARRATIVE: CASE EVENT DATE: 2017
